FAERS Safety Report 7118236-8 (Version None)
Quarter: 2010Q4

REPORT INFORMATION
  Report Type: 
  Country: None (occurrence: None)
  Receive Date: 20101123
  Receipt Date: 20101118
  Transmission Date: 20110411
  Serious: Yes (Other)
  Sender: FDA-Public Use
  Company Number: US-BAYER-201023928NA

PATIENT
  Age: 53 Year
  Sex: Female

DRUGS (6)
  1. BETASERON [Suspect]
     Indication: MULTIPLE SCLEROSIS
     Dosage: TOTAL DAILY DOSE: 8 MIU
     Route: 058
     Dates: start: 20100416
  2. BETASERON [Suspect]
     Dosage: TOTAL DAILY DOSE: 8 MIU
     Route: 058
     Dates: end: 20100813
  3. AMLODIPINE [Concomitant]
     Indication: HYPERTENSION
     Dates: start: 20100504
  4. LISINOPRIL [Concomitant]
     Indication: HYPERTENSION
     Dates: start: 20100504
  5. BYSTOLIC [Concomitant]
     Indication: HYPERTENSION
  6. WATER PILL [Concomitant]

REACTIONS (17)
  - ALOPECIA [None]
  - BLOOD PRESSURE DECREASED [None]
  - BLOOD PRESSURE FLUCTUATION [None]
  - BLOOD PRESSURE INCREASED [None]
  - BLOOD PRESSURE SYSTOLIC INCREASED [None]
  - CONCUSSION [None]
  - FALL [None]
  - FRACTURED COCCYX [None]
  - HEADACHE [None]
  - HEART RATE DECREASED [None]
  - HEART VALVE INCOMPETENCE [None]
  - HYPERSOMNIA [None]
  - LIMB DISCOMFORT [None]
  - MUSCLE TIGHTNESS [None]
  - MUSCULAR WEAKNESS [None]
  - MYALGIA [None]
  - SYNCOPE [None]
